FAERS Safety Report 16400248 (Version 1)
Quarter: 2019Q2

REPORT INFORMATION
  Report Type: Spontaneous
  Country: US (occurrence: US)
  Receive Date: 20190606
  Receipt Date: 20190606
  Transmission Date: 20190711
  Serious: No
  Sender: FDA-Public Use
  Company Number: US-ALLERGAN-1832472US

PATIENT
  Age: 45 Year
  Sex: Male

DRUGS (1)
  1. KYBELLA [Suspect]
     Active Substance: DEOXYCHOLIC ACID
     Indication: FAT TISSUE INCREASED
     Dosage: UNK UNK, SINGLE (2 VIALS)
     Route: 030
     Dates: start: 20180621, end: 20180621

REACTIONS (6)
  - Facial paresis [Unknown]
  - Facial asymmetry [Unknown]
  - Hypoaesthesia [Unknown]
  - Nerve injury [Unknown]
  - Dyskinesia [Not Recovered/Not Resolved]
  - General physical condition abnormal [Unknown]

NARRATIVE: CASE EVENT DATE: 20180621
